FAERS Safety Report 10072469 (Version 1)
Quarter: 2014Q2

REPORT INFORMATION
  Report Type: Spontaneous
  Country: US (occurrence: None)
  Receive Date: 20140409
  Receipt Date: 20140409
  Transmission Date: 20141212
  Serious: Yes (Other)
  Sender: FDA-Public Use
  Company Number: 2014P1002801

PATIENT
  Age: 13 Year
  Sex: Female
  Weight: 38.56 kg

DRUGS (3)
  1. TROKENDI XR [Suspect]
     Indication: CONVULSION
     Route: 048
     Dates: start: 20140325
  2. VITAMIN D [Concomitant]
  3. LEVOTHYROXINE [Concomitant]

REACTIONS (2)
  - Convulsion [None]
  - Wrong technique in drug usage process [None]
